FAERS Safety Report 20695517 (Version 4)
Quarter: 2023Q1

REPORT INFORMATION
  Report Type: Spontaneous
  Country: US (occurrence: US)
  Receive Date: 20220411
  Receipt Date: 20230125
  Transmission Date: 20230418
  Serious: Yes (Hospitalization)
  Sender: FDA-Public Use
  Company Number: US-CHEMOCENTRYX, INC.-2022USCCXI0077

PATIENT

DRUGS (2)
  1. TAVNEOS [Suspect]
     Active Substance: AVACOPAN
     Indication: Polyarteritis nodosa
     Dosage: 30 MG, 2X/DAY WITH FOOD
     Route: 048
     Dates: start: 202203
  2. TAVNEOS [Suspect]
     Active Substance: AVACOPAN
     Dosage: 30 MG, 2X/DAY WITH FOOD
     Route: 048

REACTIONS (5)
  - Hospitalisation [Recovered/Resolved]
  - Infection [Recovered/Resolved]
  - Influenza [Recovered/Resolved]
  - Product dose omission issue [Recovered/Resolved]
  - Off label use [Not Recovered/Not Resolved]

NARRATIVE: CASE EVENT DATE: 20220101
